FAERS Safety Report 7392779-4 (Version None)
Quarter: 2011Q2

REPORT INFORMATION
  Report Type: 
  Country: None (occurrence: None)
  Receive Date: 20110404
  Receipt Date: 20110322
  Transmission Date: 20111010
  Serious: Yes (Hospitalization)
  Sender: FDA-Public Use
  Company Number: PHHO2010FR18172

PATIENT
  Sex: Male
  Weight: 66 kg

DRUGS (13)
  1. VALGANCICLOVIR [Suspect]
  2. MOPRAL [Concomitant]
  3. SECTRAL [Concomitant]
  4. AMLODIPINE BESYLATE [Concomitant]
  5. KARDEGIC [Concomitant]
  6. ARANESP [Concomitant]
  7. NITRODERM [Concomitant]
  8. PLAVIX [Concomitant]
  9. EUPRESSYL [Concomitant]
  10. CYCLOSPORINE [Suspect]
     Indication: RENAL TRANSPLANT
     Dosage: 4 MG, UNK
     Route: 048
     Dates: start: 20100829
  11. BACTRIM [Concomitant]
  12. CELLCEPT [Suspect]
     Indication: RENAL TRANSPLANT
     Dosage: 10 MG, DAILY
     Route: 048
     Dates: start: 20100824
  13. PREDNISOLONE [Suspect]
     Indication: RENAL TRANSPLANT
     Dosage: 10 MG, DAILY
     Route: 048
     Dates: start: 20100825

REACTIONS (2)
  - COUGH [None]
  - INTERSTITIAL LUNG DISEASE [None]
